FAERS Safety Report 9049095 (Version 1)
Quarter: 2013Q1

REPORT INFORMATION
  Report Type: Spontaneous
  Country: US (occurrence: None)
  Receive Date: 20130130
  Receipt Date: 20130130
  Transmission Date: 20140127
  Serious: Yes (Hospitalization)
  Sender: FDA-Public Use
  Company Number: None

PATIENT
  Age: 65 Year
  Sex: Male
  Weight: 73.03 kg

DRUGS (8)
  1. IRINOTECAN HYDROCHLORIDE [Suspect]
     Indication: PANCREATIC CARCINOMA METASTATIC
     Dosage: Q 14 DAYS
     Route: 042
     Dates: start: 20121231, end: 20130114
  2. OXALIPLATIN? [Suspect]
     Indication: PANCREATIC CARCINOMA METASTATIC
     Dosage: Q 14 DAYS
     Route: 042
     Dates: start: 20121231, end: 20130114
  3. ZOFRAN [Concomitant]
  4. COMPAZINE [Concomitant]
  5. MEGACE [Concomitant]
  6. OXYCODONE [Concomitant]
  7. MORPHINE [Concomitant]
  8. PHENERGAN [Concomitant]

REACTIONS (12)
  - Nausea [None]
  - Vomiting [None]
  - Decreased appetite [None]
  - Diet refusal [None]
  - Dehydration [None]
  - Oropharyngeal pain [None]
  - Dizziness postural [None]
  - Weight decreased [None]
  - Diarrhoea [None]
  - Faeces discoloured [None]
  - Obstruction gastric [None]
  - Hypophagia [None]
